FAERS Safety Report 5031051-4 (Version None)
Quarter: 2006Q2

REPORT INFORMATION
  Report Type: 
  Country: None (occurrence: None)
  Receive Date: 20060621
  Receipt Date: 20060606
  Transmission Date: 20061013
  Serious: Yes (Other)
  Sender: FDA-Public Use
  Company Number: DE-JNJFOC-20060402467

PATIENT
  Sex: Female
  Weight: 14.3 kg

DRUGS (3)
  1. TOPAMAX [Suspect]
     Indication: EPILEPSY
     Route: 048
  2. TAVOR [Concomitant]
     Route: 048
  3. VALPROATE SODIUM [Concomitant]
     Route: 048

REACTIONS (4)
  - DYSPHAGIA [None]
  - PRECOCIOUS PUBERTY [None]
  - URINARY SEDIMENT PRESENT [None]
  - URINE ABNORMALITY [None]
